FAERS Safety Report 7344455-1 (Version None)
Quarter: 2011Q1

REPORT INFORMATION
  Report Type: 
  Country: None (occurrence: None)
  Receive Date: 20110310
  Receipt Date: 20110307
  Transmission Date: 20110831
  Serious: Yes (Death, Hospitalization)
  Sender: FDA-Public Use
  Company Number: CH-ELI_LILLY_AND_COMPANY-CH201102005767

PATIENT
  Age: 67 Year
  Sex: Female

DRUGS (3)
  1. PEMETREXED [Suspect]
     Indication: NON-SMALL CELL LUNG CANCER
     Dosage: 700 MG, UNKNOWN
     Route: 042
     Dates: start: 20110202
  2. BEVACIZUMAB [Suspect]
     Indication: NON-SMALL CELL LUNG CANCER
     Dosage: 375 MG, UNKNOWN
     Route: 042
     Dates: start: 20110202
  3. CARBOPLATIN [Suspect]
     Indication: NON-SMALL CELL LUNG CANCER
     Dosage: 450 MG, UNKNOWN
     Route: 042
     Dates: start: 20110202

REACTIONS (3)
  - PANCYTOPENIA [None]
  - PERFORMANCE STATUS DECREASED [None]
  - SUDDEN DEATH [None]
